FAERS Safety Report 5143545-1 (Version None)
Quarter: 2006Q4

REPORT INFORMATION
  Report Type: 
  Country: None (occurrence: None)
  Receive Date: 20061030
  Receipt Date: 20061024
  Transmission Date: 20070319
  Serious: Yes (Life-Threatening)
  Sender: FDA-Public Use
  Company Number: APP200600203

PATIENT
  Age: 74 Year
  Sex: Female

DRUGS (3)
  1. PROTAMINE SULFATE [Suspect]
     Indication: HEPARIN NEUTRALISATION THERAPY
     Dosage: 100 MG, AS REQUIRED, INTRAVENOUS (NOT OTHERWISE SPECIFIED)
     Route: 042
     Dates: start: 20040804, end: 20040804
  2. TRASYLOL [Suspect]
     Indication: DRUG USE FOR UNKNOWN INDICATION
     Dates: start: 20040804, end: 20040804
  3. NIMBEX [Suspect]

REACTIONS (4)
  - ANAPHYLACTOID REACTION [None]
  - CARDIAC FAILURE [None]
  - HYPOTENSION [None]
  - ORGAN FAILURE [None]
